FAERS Safety Report 19027417 (Version 3)
Quarter: 2021Q3

REPORT INFORMATION
  Report Type: Spontaneous
  Country: US (occurrence: US)
  Receive Date: 20210318
  Receipt Date: 20210819
  Transmission Date: 20211014
  Serious: Yes (Life-Threatening, Hospitalization, Other)
  Sender: FDA-Public Use
  Company Number: US-PFIZER INC-2021267460

PATIENT
  Age: 16 Year
  Sex: Female
  Weight: 44.4 kg

DRUGS (2)
  1. AMLODIPINE BESILATE [Suspect]
     Active Substance: AMLODIPINE BESYLATE
     Indication: HYPERTENSION
     Dosage: UNK (OVERDOSE)
  2. AMLODIPINE BESILATE [Suspect]
     Active Substance: AMLODIPINE BESYLATE
     Indication: SUICIDE ATTEMPT

REACTIONS (11)
  - Hypotension [Recovering/Resolving]
  - Neuropathy peripheral [Not Recovered/Not Resolved]
  - Pulseless electrical activity [Recovering/Resolving]
  - Abdominal pain upper [Unknown]
  - Acute kidney injury [Recovering/Resolving]
  - Shock [Recovering/Resolving]
  - Cerebral haemorrhage [Recovering/Resolving]
  - Cardiac arrest [Recovering/Resolving]
  - Anuria [Recovering/Resolving]
  - Suicide attempt [Unknown]
  - Intentional overdose [Recovering/Resolving]
